FAERS Safety Report 21022726 (Version 3)
Quarter: 2023Q1

REPORT INFORMATION
  Report Type: Spontaneous
  Country: US (occurrence: US)
  Receive Date: 20220629
  Receipt Date: 20230201
  Transmission Date: 20230418
  Serious: Yes (Other)
  Sender: FDA-Public Use
  Company Number: US-OTSUKA-2022_033685

PATIENT
  Age: 26 Year
  Sex: Female

DRUGS (2)
  1. ABILIFY MAINTENA [Suspect]
     Active Substance: ARIPIPRAZOLE
     Indication: Product used for unknown indication
     Dosage: 400 MG
     Route: 065
  2. ARIPIPRAZOLE [Suspect]
     Active Substance: ARIPIPRAZOLE
     Indication: Product used for unknown indication
     Dosage: UNK
     Route: 065

REACTIONS (4)
  - Hallucination, auditory [Unknown]
  - Drug hypersensitivity [Unknown]
  - Vision blurred [Unknown]
  - Therapeutic product effect incomplete [Unknown]

NARRATIVE: CASE EVENT DATE: 20210519
